FAERS Safety Report 6195652-2 (Version None)
Quarter: 2009Q2

REPORT INFORMATION
  Report Type: 
  Country: None (occurrence: None)
  Receive Date: 20090519
  Receipt Date: 20090507
  Transmission Date: 20091009
  Serious: Yes (Disabling, Other)
  Sender: FDA-Public Use
  Company Number: FR-ELI_LILLY_AND_COMPANY-FR200903004839

PATIENT
  Age: 68 Year
  Sex: Male
  Weight: 70 kg

DRUGS (8)
  1. CYMBALTA [Suspect]
     Indication: DEPRESSION
     Dosage: 60 MG, DAILY (1/D)
     Route: 048
     Dates: start: 20080412, end: 20090319
  2. CYMBALTA [Suspect]
     Dosage: 30 MG, DAILY (1/D)
     Route: 048
     Dates: start: 20090319, end: 20090409
  3. PROZAC [Suspect]
     Indication: DEPRESSION
     Dosage: 40 MG, DAILY (1/D)
     Route: 048
     Dates: start: 20071001, end: 20080413
  4. ZOLADEX [Concomitant]
     Indication: PROSTATE CANCER
     Dosage: 10.8 MG, EVERY 12 WEEKS
     Route: 058
     Dates: start: 20080401
  5. ZOMETA [Concomitant]
     Indication: METASTASES TO BONE
     Dosage: 4 MG, EVERY 4 WEEKS
     Route: 042
     Dates: start: 20080401
  6. MONOTILDIEM [Concomitant]
     Indication: HYPERTENSION
     Dosage: 300 MG, DAILY (1/D)
     Route: 048
     Dates: start: 19990101
  7. VASTAREL [Concomitant]
     Dosage: 35 MG, DAILY (1/D)
     Route: 048
     Dates: start: 19990101
  8. COZAAR [Concomitant]
     Indication: HYPERTENSION
     Dosage: 100 MG, DAILY (1/D)
     Route: 048
     Dates: start: 19990101

REACTIONS (6)
  - DYSPHONIA [None]
  - METASTASES TO BONE [None]
  - NEOPLASM PROSTATE [None]
  - VOCAL CORD CYST [None]
  - VOCAL CORD INFLAMMATION [None]
  - VOCAL CORD PARALYSIS [None]
